FAERS Safety Report 4739489-7 (Version None)
Quarter: 2005Q3

REPORT INFORMATION
  Report Type: 
  Country: None (occurrence: None)
  Receive Date: 20050810
  Receipt Date: 20050329
  Transmission Date: 20060218
  Serious: No
  Sender: FDA-Public Use
  Company Number: US-GLAXOSMITHKLINE-A0551770A

PATIENT
  Age: 22 Year
  Sex: Female

DRUGS (2)
  1. PAXIL [Suspect]
     Dosage: 20MG PER DAY
     Route: 048
     Dates: start: 20021201, end: 20050301
  2. ZOLOFT [Concomitant]

REACTIONS (6)
  - DEPRESSION [None]
  - DRUG EXPOSURE DURING PREGNANCY [None]
  - DRUG WITHDRAWAL SYNDROME [None]
  - MOTION SICKNESS [None]
  - NAUSEA [None]
  - PALPITATIONS [None]
